FAERS Safety Report 6646874-5 (Version None)
Quarter: 2010Q1

REPORT INFORMATION
  Report Type: 
  Country: None (occurrence: None)
  Receive Date: 20100323
  Receipt Date: 20100311
  Transmission Date: 20100710
  Serious: Yes (Other)
  Sender: FDA-Public Use
  Company Number: US-PFIZER INC-2010014963

PATIENT
  Sex: Male

DRUGS (3)
  1. GEODON [Suspect]
     Indication: SCHIZOPHRENIA, PARANOID TYPE
     Dosage: 60 MG, 1X/DAY
     Route: 048
     Dates: start: 20090501
  2. PALIPERIDONE [Concomitant]
     Dosage: 9 MG, UNK
  3. AMBIEN [Concomitant]
     Dosage: 10 MG, UNK

REACTIONS (2)
  - ANXIETY [None]
  - BODY TEMPERATURE DECREASED [None]
